FAERS Safety Report 8925993 (Version 3)
Quarter: 2013Q1

REPORT INFORMATION
  Report Type: Spontaneous
  Country: GB (occurrence: GB)
  Receive Date: 20121126
  Receipt Date: 20130116
  Transmission Date: 20140127
  Serious: Yes (Hospitalization, Other)
  Sender: FDA-Public Use
  Company Number: PHFR2012GB006030

PATIENT
  Age: 66 None
  Sex: Female

DRUGS (5)
  1. CLOZARIL [Suspect]
     Indication: SCHIZOPHRENIA
     Dosage: 300 MG, DAILY
     Route: 048
     Dates: end: 201207
  2. CLOZARIL [Suspect]
     Dosage: UNK UKN, UNK
     Route: 048
     Dates: start: 201209, end: 20121218
  3. AMISULPRIDE [Concomitant]
     Indication: SCHIZOPHRENIA
     Dosage: 600 MG, DAILY
     Route: 048
     Dates: end: 201209
  4. MIRTAZAPINE [Concomitant]
     Indication: INSOMNIA
     Dosage: 30 MG, DAILY
     Route: 048
     Dates: start: 201202, end: 201207
  5. LORAZEPAM [Concomitant]
     Indication: AGITATION
     Dosage: 0.5 MG, PRN
     Route: 048
     Dates: start: 201207

REACTIONS (10)
  - Gastrointestinal carcinoma [Not Recovered/Not Resolved]
  - Weight decreased [Unknown]
  - Anaemia [Unknown]
  - Haemoglobin decreased [Unknown]
  - Red blood cell count decreased [Unknown]
  - Blood sodium decreased [Unknown]
  - Blood creatinine decreased [Unknown]
  - White blood cell count increased [Unknown]
  - Platelet count increased [Unknown]
  - Neutrophil count increased [Unknown]
